FAERS Safety Report 10992790 (Version 2)
Quarter: 2015Q2

REPORT INFORMATION
  Report Type: Spontaneous
  Country: US (occurrence: US)
  Receive Date: 20150406
  Receipt Date: 20150525
  Transmission Date: 20150821
  Serious: No
  Sender: FDA-Public Use
  Company Number: US-JNJFOC-20130915864

PATIENT
  Sex: Female

DRUGS (1)
  1. REMICADE [Suspect]
     Active Substance: INFLIXIMAB
     Indication: PRODUCT USED FOR UNKNOWN INDICATION
     Route: 042
     Dates: end: 2013

REACTIONS (5)
  - Pruritus [Unknown]
  - Dyspnoea [Unknown]
  - Erythema [Unknown]
  - Infusion related reaction [Unknown]
  - Burning sensation [Unknown]

NARRATIVE: CASE EVENT DATE: 2013
